FAERS Safety Report 12340505 (Version 2)
Quarter: 2016Q3

REPORT INFORMATION
  Report Type: Report from Study
  Country: US (occurrence: US)
  Receive Date: 20160506
  Receipt Date: 20160923
  Transmission Date: 20161109
  Serious: Yes (Other)
  Sender: FDA-Public Use
  Company Number: US-BAYER-2016-046339

PATIENT
  Age: 66 Year
  Sex: Male

DRUGS (6)
  1. STIVARGA [Suspect]
     Active Substance: REGORAFENIB
     Indication: COLON CANCER
     Dosage: 80 MG, QD
     Route: 048
  2. STIVARGA [Suspect]
     Active Substance: REGORAFENIB
     Indication: COLON CANCER
     Dosage: 160 MG, DAILY
     Route: 048
     Dates: start: 20160312
  3. STIVARGA [Suspect]
     Active Substance: REGORAFENIB
     Indication: COLON CANCER
     Dosage: DAILY DOSE 160 MG
     Route: 048
     Dates: start: 20160305
  4. STIVARGA [Suspect]
     Active Substance: REGORAFENIB
     Indication: COLON CANCER
     Dosage: DAILY DOSE 120 MG
     Route: 048
     Dates: start: 20160401
  5. STIVARGA [Suspect]
     Active Substance: REGORAFENIB
     Indication: COLON CANCER
     Dosage: 80 MG, QD
     Route: 048
     Dates: start: 20160503
  6. STIVARGA [Suspect]
     Active Substance: REGORAFENIB
     Indication: COLON CANCER
     Dosage: DAILY DOSE 120 MG
     Route: 048

REACTIONS (12)
  - Dehydration [None]
  - Gastrointestinal pain [None]
  - Dysphonia [Not Recovered/Not Resolved]
  - Drug dose omission [None]
  - Drug dose omission [None]
  - Diarrhoea [None]
  - Weight decreased [None]
  - Weight decreased [None]
  - Diverticulitis [None]
  - Pain [None]
  - Diarrhoea [Recovering/Resolving]
  - Blood bilirubin increased [Recovering/Resolving]

NARRATIVE: CASE EVENT DATE: 201603
